FAERS Safety Report 9032331 (Version 1)
Quarter: 2013Q1

REPORT INFORMATION
  Report Type: Spontaneous
  Country: US (occurrence: US)
  Receive Date: 20130122
  Receipt Date: 20130122
  Transmission Date: 20140127
  Serious: No
  Sender: FDA-Public Use
  Company Number: US-PFIZER INC-2013022067

PATIENT
  Age: 63 Year
  Sex: Female

DRUGS (1)
  1. SUTENT [Suspect]
     Indication: MALIGNANT URINARY TRACT NEOPLASM
     Dosage: 50 MG, DAILY 4WKS ON, 2WKS OFF
     Dates: start: 20120710

REACTIONS (2)
  - Skin haemorrhage [Unknown]
  - Fall [Unknown]
